FAERS Safety Report 6604578-9 (Version None)
Quarter: 2010Q1

REPORT INFORMATION
  Report Type: 
  Country: None (occurrence: None)
  Receive Date: 20100226
  Receipt Date: 20091207
  Transmission Date: 20100710
  Serious: No
  Sender: FDA-Public Use
  Company Number: A0833899A

PATIENT
  Age: 34 Year
  Sex: Female

DRUGS (4)
  1. LAMICTAL CD [Suspect]
     Indication: DEPRESSION
     Dosage: 100MG PER DAY
     Route: 048
     Dates: start: 20090911
  2. PROGESTERONE [Concomitant]
  3. ATIVAN [Concomitant]
  4. AMBIEN [Concomitant]

REACTIONS (3)
  - BODY TEMPERATURE FLUCTUATION [None]
  - BURNING SENSATION [None]
  - FUNGAL INFECTION [None]
